FAERS Safety Report 5828231-4 (Version None)
Quarter: 2008Q3

REPORT INFORMATION
  Report Type: 
  Country: None (occurrence: None)
  Receive Date: 20080729
  Receipt Date: 20080121
  Transmission Date: 20090109
  Serious: Yes (Death)
  Sender: FDA-Public Use
  Company Number: SPV1-2008-00198

PATIENT
  Age: 77 Year
  Sex: Male

DRUGS (4)
  1. MIDODRINE HYDROCHLORIDE [Suspect]
     Indication: HYPOTENSION
     Dosage: 2.5 MG, 2X/DAY:BID, ORAL
     Route: 048
     Dates: start: 20070101, end: 20070101
  2. DIGOXIN [Concomitant]
  3. ENANTONE          /00726901/     (LEUPRORELIN) [Concomitant]
  4. HYDROCORTISONE [Concomitant]

REACTIONS (1)
  - DEATH [None]
